FAERS Safety Report 25632245 (Version 1)
Quarter: 2025Q3

REPORT INFORMATION
  Report Type: Spontaneous
  Country: US (occurrence: US)
  Receive Date: 20250801
  Receipt Date: 20250801
  Transmission Date: 20251021
  Serious: Yes (Other)
  Sender: AMGEN
  Company Number: US-AMGEN-USASP2025146273

PATIENT

DRUGS (1)
  1. RITUXIMAB [Suspect]
     Active Substance: RITUXIMAB
     Indication: Autoimmune blistering disease
     Route: 065

REACTIONS (8)
  - Pemphigoid [Unknown]
  - Mucous membrane pemphigoid [Unknown]
  - Ocular pemphigoid [Unknown]
  - Acquired epidermolysis bullosa [Unknown]
  - Pemphigus [Unknown]
  - Drug effective for unapproved indication [Unknown]
  - Therapy partial responder [Unknown]
  - Off label use [Unknown]
